FAERS Safety Report 15658281 (Version 1)
Quarter: 2018Q4

REPORT INFORMATION
  Report Type: Report from Study
  Country: DE (occurrence: DE)
  Receive Date: 20181126
  Receipt Date: 20181126
  Transmission Date: 20190205
  Serious: Yes (Life-Threatening, Other)
  Sender: FDA-Public Use
  Company Number: DE-PFIZER INC-0013892801PHAMED

PATIENT
  Age: 83 Year
  Sex: Male
  Weight: 70 kg

DRUGS (34)
  1. VITAMIN C [Concomitant]
     Active Substance: ASCORBIC ACID
     Indication: VITAMIN SUPPLEMENTATION
     Dosage: 1 DF, 1X/DAY (245)
     Route: 048
     Dates: end: 19980223
  2. FENTANYL. [Suspect]
     Active Substance: FENTANYL
     Indication: ANAESTHESIA
  3. TRAMAL LONG [Suspect]
     Active Substance: TRAMADOL
     Indication: PAIN
  4. AGIOLAX [MATRICARIA RECUTITA;PLANTAGO AFRA SEED;SENNA ALEXANDRINA FRUI [Concomitant]
     Indication: CONSTIPATION
     Dosage: UNK (099)
     Route: 048
     Dates: start: 19980130, end: 19980223
  5. FRAGMIN P [Suspect]
     Active Substance: DALTEPARIN SODIUM
     Indication: THROMBOSIS PROPHYLAXIS
     Dosage: 1 DF, 1X/DAY
     Route: 058
     Dates: start: 19980225
  6. CIPROBAY [CIPROFLOXACIN HYDROCHLORIDE] [Suspect]
     Active Substance: CIPROFLOXACIN
     Indication: INFECTION PROPHYLAXIS
  7. BACTRIM [Suspect]
     Active Substance: SULFAMETHOXAZOLE\TRIMETHOPRIM
     Indication: ILL-DEFINED DISORDER
     Dosage: 1 DF, 1X/DAY (245)
     Route: 048
     Dates: start: 19980226, end: 19980226
  8. BACTRIM [Suspect]
     Active Substance: SULFAMETHOXAZOLE\TRIMETHOPRIM
     Indication: INFECTION PROPHYLAXIS
  9. CODIOVAN [Suspect]
     Active Substance: HYDROCHLOROTHIAZIDE\VALSARTAN
     Indication: HYPERTENSION
  10. CIPROBAY [CIPROFLOXACIN HYDROCHLORIDE] [Suspect]
     Active Substance: CIPROFLOXACIN
     Indication: ILL-DEFINED DISORDER
     Dosage: 400 MG, 1X/DAY
     Route: 042
     Dates: start: 19980226, end: 19980226
  11. EUGLUCON N [Suspect]
     Active Substance: GLYBURIDE
     Indication: ILL-DEFINED DISORDER
     Dosage: 2 DF, 1X/DAY (245)
     Route: 048
     Dates: start: 19980130
  12. NORMOFUNDIN [Concomitant]
     Active Substance: UNSPECIFIED INGREDIENT
     Indication: ELECTROLYTE IMBALANCE
     Dosage: 1 L, 1X/DAY
     Route: 042
     Dates: start: 19980226, end: 19980226
  13. ANTRA [OMEPRAZOLE] [Concomitant]
     Indication: PROPHYLAXIS
     Dosage: (005)
     Route: 048
     Dates: start: 19980130, end: 19980223
  14. VITAMINS NOS [Concomitant]
     Active Substance: VITAMINS
     Indication: VITAMIN SUPPLEMENTATION
     Dosage: 1 DF, 1X/DAY (245)
     Route: 048
     Dates: end: 19980223
  15. ADALAT [Suspect]
     Active Substance: NIFEDIPINE
     Indication: HYPERTENSION
  16. ASPIRIN [ACETYLSALICYLIC ACID] [Suspect]
     Active Substance: ASPIRIN
     Indication: ILL-DEFINED DISORDER
     Dosage: 100 MG, 1X/DAY (245)
     Route: 048
     Dates: start: 19980130, end: 19980223
  17. GINKOBIL [Concomitant]
     Indication: CARDIOVASCULAR DISORDER
     Dosage: 1 DF, 1X/DAY (245)
     Route: 048
     Dates: start: 19980130, end: 19980223
  18. DEXAMETHASONE. [Concomitant]
     Active Substance: DEXAMETHASONE
     Indication: CATARACT OPERATION
     Dosage: 5 GTT, 1X/DAY (332)
     Route: 047
  19. EUGLUCON N [Suspect]
     Active Substance: GLYBURIDE
     Indication: DIABETES MELLITUS
  20. NOCTAMID [Suspect]
     Active Substance: LORMETAZEPAM
     Indication: SLEEP DISORDER
  21. AMLODIPINE [Concomitant]
     Active Substance: AMLODIPINE BESYLATE
     Indication: HYPERTENSION
     Dosage: 10 MG, 1X/DAY (245)
     Route: 048
     Dates: start: 19980130
  22. SPASURET [Concomitant]
     Indication: PROSTATIC OPERATION
     Dosage: UNK (245)
     Route: 048
     Dates: start: 19980130, end: 19980223
  23. NOVALGIN (METAMIZOLE SODIUM) [Suspect]
     Active Substance: METAMIZOLE SODIUM
     Indication: ILL-DEFINED DISORDER
     Dosage: 40 GTT, 1X/DAY (332)
     Route: 048
     Dates: start: 19980226, end: 19980226
  24. NOVALGIN (METAMIZOLE SODIUM) [Suspect]
     Active Substance: METAMIZOLE SODIUM
     Indication: PAIN
  25. ADALAT [Suspect]
     Active Substance: NIFEDIPINE
     Indication: ILL-DEFINED DISORDER
     Dosage: 10 MG, 1X/DAY (212)
     Route: 048
     Dates: start: 19980226, end: 19980226
  26. NOCTAMID [Suspect]
     Active Substance: LORMETAZEPAM
     Indication: ILL-DEFINED DISORDER
     Dosage: 1 DF, 1X/DAY (245)
     Route: 048
     Dates: start: 19980209, end: 19980223
  27. NOVODIGAL [DIGOXIN] [Concomitant]
     Active Substance: DIGOXIN
     Indication: HYPERTENSION
     Dosage: 0.2 MG, 1X/DAY (245)
     Route: 048
     Dates: start: 19980130
  28. METAMIZOLE SODIUM [Concomitant]
     Active Substance: METAMIZOLE SODIUM
     Dosage: UNK
     Dates: start: 19980226, end: 19980226
  29. TEBONIN [GINKGO BILOBA EXTRACT] [Concomitant]
     Indication: CARDIOVASCULAR DISORDER
     Dosage: 60 GTT, 1X/DAY (332)
     Route: 048
     Dates: start: 19980224
  30. FENTANYL. [Suspect]
     Active Substance: FENTANYL
     Indication: ILL-DEFINED DISORDER
     Dosage: 1 DF, 1X/DAY
     Route: 042
     Dates: start: 19980226, end: 19980226
  31. TRAMAL LONG [Suspect]
     Active Substance: TRAMADOL
     Indication: ILL-DEFINED DISORDER
     Dosage: 100 MG, 1X/DAY (245)
     Route: 048
     Dates: start: 19980209, end: 19980223
  32. ASPIRIN [ACETYLSALICYLIC ACID] [Suspect]
     Active Substance: ASPIRIN
     Indication: THROMBOSIS PROPHYLAXIS
  33. CODIOVAN [Suspect]
     Active Substance: HYDROCHLOROTHIAZIDE\VALSARTAN
     Indication: ILL-DEFINED DISORDER
     Dosage: 160 MG, 1X/DAY (005)
     Route: 048
     Dates: start: 19980130
  34. HYPERICUM [Concomitant]
     Active Substance: ST. JOHN^S WORT
     Indication: AGITATION
     Dosage: 1 DF, UNK (005)
     Route: 048
     Dates: start: 19980130, end: 19980223

REACTIONS (6)
  - Pyrexia [Recovering/Resolving]
  - Skin lesion [Recovering/Resolving]
  - Ocular hyperaemia [Recovering/Resolving]
  - Pruritus [Recovering/Resolving]
  - Toxic epidermal necrolysis [Recovering/Resolving]
  - Lip erosion [Recovering/Resolving]

NARRATIVE: CASE EVENT DATE: 19980227
